FAERS Safety Report 19025573 (Version 2)
Quarter: 2021Q3

REPORT INFORMATION
  Report Type: Report from Study
  Country: PL (occurrence: PL)
  Receive Date: 20210318
  Receipt Date: 20210810
  Transmission Date: 20211014
  Serious: Yes (Hospitalization)
  Sender: FDA-Public Use
  Company Number: PL-TAKEDA-PL201727345

PATIENT
  Sex: Male

DRUGS (7)
  1. PERFALGAN [Concomitant]
     Active Substance: ACETAMINOPHEN
     Indication: POSTOPERATIVE CARE
  2. IDURSULFASE [Suspect]
     Active Substance: IDURSULFASE
     Indication: MUCOPOLYSACCHARIDOSIS II
     Dosage: 8.5 MG/KG, 1X/WEEK
     Route: 042
     Dates: start: 20110727
  3. CHLORAMPHENICOLUM [Concomitant]
     Indication: SCAR
  4. PENALGIN [Concomitant]
     Indication: POSTOPERATIVE CARE
  5. ATOSSA                             /00955301/ [Concomitant]
     Indication: POSTOPERATIVE CARE
  6. KIDOFEN [Concomitant]
     Indication: POSTOPERATIVE CARE
  7. IBUPROFEN. [Concomitant]
     Active Substance: IBUPROFEN
     Indication: POSTOPERATIVE CARE

REACTIONS (3)
  - Umbilical hernia [Recovered/Resolved]
  - Inguinal hernia [Recovered/Resolved]
  - Pyrexia [Recovered/Resolved]

NARRATIVE: CASE EVENT DATE: 20130407
